FAERS Safety Report 9634102 (Version 1)
Quarter: 2013Q4

REPORT INFORMATION
  Report Type: Spontaneous
  Country: GR (occurrence: GR)
  Receive Date: 20131021
  Receipt Date: 20131021
  Transmission Date: 20140711
  Serious: Yes (Other)
  Sender: FDA-Public Use
  Company Number: GR-BAYER-2013-123936

PATIENT
  Sex: Male

DRUGS (3)
  1. CIPROXIN [Suspect]
     Indication: PROSTATITIS
     Dosage: 400 MG, UNK
     Route: 042
     Dates: start: 20131010, end: 20131010
  2. GLUCOPHAGE [Concomitant]
  3. SALOSPIR [Concomitant]

REACTIONS (4)
  - Syncope [Recovering/Resolving]
  - Cold sweat [Recovering/Resolving]
  - Malaise [Recovering/Resolving]
  - Hypotension [Recovering/Resolving]
